FAERS Safety Report 19480829 (Version 4)
Quarter: 2021Q3

REPORT INFORMATION
  Report Type: Spontaneous
  Country: RO (occurrence: RO)
  Receive Date: 20210701
  Receipt Date: 20210809
  Transmission Date: 20211014
  Serious: Yes (Hospitalization, Other)
  Sender: FDA-Public Use
  Company Number: RO-AUROBINDO-AUR-APL-2021-026304

PATIENT
  Age: 24 Year
  Sex: Female

DRUGS (28)
  1. AMISULPRIDE [Suspect]
     Active Substance: AMISULPRIDE
     Indication: AGITATION
     Dosage: 200 MILLIGRAM, DAILY
     Route: 065
  2. OLANZAPINE. [Suspect]
     Active Substance: OLANZAPINE
     Indication: HALLUCINATION, AUDITORY
     Dosage: 5 MILLIGRAM, DAILY
     Route: 065
  3. PREGABALIN. [Suspect]
     Active Substance: PREGABALIN
     Indication: AGITATION
     Dosage: 225 MILLIGRAM, DAILY
     Route: 065
  4. ZUCLOPENTHIXOL [Suspect]
     Active Substance: ZUCLOPENTHIXOL
     Indication: BEHAVIOUR DISORDER
     Dosage: 1 VIAL 3 DOSES
     Route: 030
  5. COLECALCIFEROL [Concomitant]
     Active Substance: CHOLECALCIFEROL
     Indication: RELAPSING-REMITTING MULTIPLE SCLEROSIS
     Dosage: UNK
     Route: 065
  6. GABAPENTIN. [Suspect]
     Active Substance: GABAPENTIN
     Indication: HALLUCINATION, AUDITORY
     Dosage: 300 MILLIGRAM, DAILY
     Route: 065
  7. GABAPENTIN. [Suspect]
     Active Substance: GABAPENTIN
     Indication: PSYCHOTIC DISORDER
  8. OLANZAPINE. [Suspect]
     Active Substance: OLANZAPINE
     Indication: DELIRIUM
  9. AMISULPRIDE [Suspect]
     Active Substance: AMISULPRIDE
     Indication: DELIRIUM
  10. ESCITALOPRAM [Suspect]
     Active Substance: ESCITALOPRAM OXALATE
     Indication: AFFECT LABILITY
  11. OLANZAPINE. [Suspect]
     Active Substance: OLANZAPINE
     Indication: DEPRESSED MOOD
     Dosage: 7.5 MILLIGRAM, DAILY
     Route: 065
  12. COLECALCIFEROL [Concomitant]
     Active Substance: CHOLECALCIFEROL
     Dosage: 50000 INTERNATIONAL UNIT, EVERY WEEK
     Route: 065
  13. OLANZAPINE. [Concomitant]
     Active Substance: OLANZAPINE
     Indication: PRODUCT USED FOR UNKNOWN INDICATION
     Dosage: UNK
     Route: 065
  14. PREGABALIN. [Concomitant]
     Active Substance: PREGABALIN
     Indication: DYSPHORIA
     Dosage: UNK
     Route: 065
  15. OLANZAPINE. [Suspect]
     Active Substance: OLANZAPINE
     Indication: AFFECT LABILITY
     Dosage: 10 MILLIGRAM, DAILY
     Route: 065
  16. OLANZAPINE. [Suspect]
     Active Substance: OLANZAPINE
     Indication: AGITATION
  17. OLANZAPINE. [Suspect]
     Active Substance: OLANZAPINE
     Indication: PSYCHOTIC DISORDER
  18. ZUCLOPENTHIXOL [Suspect]
     Active Substance: ZUCLOPENTHIXOL
     Indication: DELIRIUM
  19. AMISULPRIDE [Suspect]
     Active Substance: AMISULPRIDE
     Indication: PSYCHOTIC DISORDER
  20. ESCITALOPRAM [Suspect]
     Active Substance: ESCITALOPRAM OXALATE
     Indication: DEPRESSED MOOD
     Dosage: 10 MILLIGRAM, DAILY
     Route: 065
  21. ZUCLOPENTHIXOL [Suspect]
     Active Substance: ZUCLOPENTHIXOL
     Indication: AGITATION
  22. ESCITALOPRAM [Suspect]
     Active Substance: ESCITALOPRAM OXALATE
     Indication: HALLUCINATION, AUDITORY
  23. GABAPENTIN. [Suspect]
     Active Substance: GABAPENTIN
     Indication: DEPRESSED MOOD
  24. GABAPENTIN. [Suspect]
     Active Substance: GABAPENTIN
     Indication: AFFECT LABILITY
  25. PREGABALIN. [Suspect]
     Active Substance: PREGABALIN
     Indication: DELIRIUM
  26. QUETIAPINE. [Suspect]
     Active Substance: QUETIAPINE
     Indication: DEPRESSION
     Dosage: 100 MILLIGRAM, ONCE A DAY
     Route: 065
  27. AMISULPRIDE [Suspect]
     Active Substance: AMISULPRIDE
     Indication: BEHAVIOUR DISORDER
  28. OLANZAPINE. [Suspect]
     Active Substance: OLANZAPINE
     Indication: BEHAVIOUR DISORDER

REACTIONS (5)
  - Therapeutic product effect incomplete [Unknown]
  - Drug ineffective [Recovering/Resolving]
  - Therapy interrupted [Unknown]
  - Treatment noncompliance [Unknown]
  - Hyperprolactinaemia [Recovering/Resolving]

NARRATIVE: CASE EVENT DATE: 20201124
